FAERS Safety Report 15710991 (Version 1)
Quarter: 2018Q4

REPORT INFORMATION
  Report Type: Spontaneous
  Country: GB (occurrence: GB)
  Receive Date: 20181211
  Receipt Date: 20181211
  Transmission Date: 20190205
  Serious: Yes (Other)
  Sender: FDA-Public Use
  Company Number: GB-009507513-2007-166751-NL

PATIENT
  Sex: Male

DRUGS (1)
  1. MIRTAZAPINE. [Suspect]
     Active Substance: MIRTAZAPINE
     Indication: PRODUCT USED FOR UNKNOWN INDICATION
     Dosage: DOSE TEXT: THIS DOSE WAS GIVEN FOR 2 YEARS, CONTINUING: UNK
     Route: 065

REACTIONS (2)
  - Overdose [Unknown]
  - Cerebrovascular accident [Unknown]
